FAERS Safety Report 21816284 (Version 1)
Quarter: 2023Q1

REPORT INFORMATION
  Report Type: Spontaneous
  Country: US (occurrence: None)
  Receive Date: 20230103
  Receipt Date: 20230103
  Transmission Date: 20230417
  Serious: Yes (Other)
  Sender: FDA-Public Use
  Company Number: None

PATIENT
  Age: 54 Year
  Sex: Female

DRUGS (1)
  1. AMBI FADE NORMAL SKIN [Suspect]
     Active Substance: HYDROQUINONE\OCTINOXATE
     Indication: Skin disorder
     Dosage: FREQUENCY : TWICE A DAY;?
     Route: 061

REACTIONS (2)
  - Skin discolouration [None]
  - Emotional distress [None]

NARRATIVE: CASE EVENT DATE: 20190901
